FAERS Safety Report 6551437-6 (Version None)
Quarter: 2010Q1

REPORT INFORMATION
  Report Type: 
  Country: None (occurrence: None)
  Receive Date: 20100120
  Receipt Date: 20100104
  Transmission Date: 20100710
  Serious: Yes (Hospitalization)
  Sender: FDA-Public Use
  Company Number: BVT-000271

PATIENT
  Sex: Male
  Weight: 122 kg

DRUGS (3)
  1. KINERET [Suspect]
     Indication: STILL'S DISEASE ADULT ONSET
     Dosage: SUBCUTANEOUS
     Route: 058
     Dates: start: 20080306, end: 20080320
  2. METHOTREXATE [Concomitant]
  3. LEFLUNOMIDE [Concomitant]

REACTIONS (1)
  - CARCINOID TUMOUR [None]
